FAERS Safety Report 25557330 (Version 2)
Quarter: 2025Q3

REPORT INFORMATION
  Report Type: Report from Study
  Country: EU (occurrence: EU)
  Receive Date: 20250715
  Receipt Date: 20250722
  Transmission Date: 20251021
  Serious: Yes (Hospitalization)
  Sender: SANDOZ
  Company Number: EU-SANDOZ-SDZ2025DE049788

PATIENT
  Sex: Male

DRUGS (1)
  1. ADALIMUMAB [Suspect]
     Active Substance: ADALIMUMAB
     Indication: Product used for unknown indication
     Dosage: 40 MG, Q2W
     Route: 065

REACTIONS (1)
  - Peripheral arterial occlusive disease [Recovered/Resolved]

NARRATIVE: CASE EVENT DATE: 20250422
